FAERS Safety Report 10568169 (Version 2)
Quarter: 2015Q2

REPORT INFORMATION
  Report Type: Spontaneous
  Country: JP (occurrence: None)
  Receive Date: 20141104
  Receipt Date: 20150504
  Transmission Date: 20150821
  Serious: Yes (Hospitalization, Other)
  Sender: FDA-Public Use
  Company Number: 2009JP002626

PATIENT
  Age: 43 Year
  Sex: Female
  Weight: 57 kg

DRUGS (43)
  1. GLAKAY (MENATETRENONE) [Concomitant]
  2. MAGNESIUM OXIDE (MAGNESIUM OXIDE) [Concomitant]
     Active Substance: MAGNESIUM OXIDE
  3. SELTOUCH (FELBINAC) [Concomitant]
     Active Substance: FELBINAC
  4. MEDICON /00048102/ (DEXTROMETHORPHAN HYDROBROMIDE) [Concomitant]
  5. ALESION (EPINASTINE HYDROCHLORIDE) [Concomitant]
  6. RINDERON DP (BETAMETHASONE DIPROPIONATE) [Concomitant]
  7. LOXONIN (LOXOPROFEN SODIUM) [Concomitant]
     Active Substance: LOXOPROFEN SODIUM
  8. PROGRAF [Suspect]
     Active Substance: TACROLIMUS\TACROLIMUS ANHYDROUS
     Indication: LUPUS NEPHRITIS
     Route: 048
     Dates: start: 20070807, end: 20070905
  9. PREDONINE [Suspect]
     Active Substance: PREDNISOLONE\PREDNISOLONE ACETATE\PREDNISOLONE SODIUM SUCCINATE
     Indication: LUPUS NEPHRITIS
     Route: 048
     Dates: end: 20080910
  10. BAYASPIRIN (ACETYLSALICYLIC ACID) (ACETYLSALICYLIC ACID) [Suspect]
     Active Substance: ASPIRIN
     Indication: PROPHYLAXIS
     Dosage: ONCE DAILY
     Route: 048
  11. BAKTAR [Suspect]
     Active Substance: SULFAMETHOXAZOLE\TRIMETHOPRIM
     Indication: PROPHYLAXIS
     Dosage: ONCE WEEKLY
     Route: 048
     Dates: start: 201310, end: 20131114
  12. ACINON (NIZATIDINE) [Concomitant]
  13. LIPITOR [Concomitant]
     Active Substance: ATORVASTATIN CALCIUM
  14. ULGUT /00963802/ (BENEXATE HYDROCHLORIDE) [Concomitant]
  15. ROZEREM (RAMELTEON) [Concomitant]
  16. RECALBON (MINODRONIC ACID) [Concomitant]
  17. MAGMITT (MAGNESIUM OXIDE) [Concomitant]
     Active Substance: MAGNESIUM OXIDE
  18. DIOVAN [Suspect]
     Active Substance: VALSARTAN
     Indication: LUPUS NEPHRITIS
     Dosage: ONCE DAILY
     Route: 048
     Dates: start: 20090618, end: 20090619
  19. HYDROCORTONE /00028603/ (HYDROCORTISONE SODIUM PHOSPHATE) [Concomitant]
  20. METHYCOBAL (METHYLCOBALAMIN) [Concomitant]
  21. LOCOID (HYDROCORTISONE BUTYRATE) [Concomitant]
  22. PREDNISOLONE SODIUM SUCCINATE (PREDNISOLONE SODIUM SUCCINATE) [Concomitant]
  23. CALNATE (ENALAPRIL MALEATE) [Concomitant]
  24. LOXONIN (LOXOPROFEN SODIUM) [Concomitant]
     Active Substance: LOXOPROFEN SODIUM
  25. DERMOVATE (CLOBETASOL PROPIONATE) [Concomitant]
  26. SUMILU (FELBINAC) [Concomitant]
  27. BLOPRESS (CANDESARTAN CILEXETIL) [Suspect]
     Active Substance: CANDESARTAN CILEXETIL
     Indication: LUPUS NEPHRITIS
     Dosage: ONCE DAILY
     Route: 048
     Dates: start: 20081120, end: 20090326
  28. IMURAN [Suspect]
     Active Substance: AZATHIOPRINE
     Indication: LUPUS NEPHRITIS
     Dosage: ONCE DAILY
     Route: 048
     Dates: start: 20120615, end: 20120704
  29. ERYTHROCIN [Suspect]
     Active Substance: ERYTHROMYCIN LACTOBIONATE
     Indication: DRUG LEVEL INCREASED
     Dosage: ONCE DAILY
     Route: 048
     Dates: start: 20140314, end: 20140410
  30. MYSLEE (ZOLPIDEM) [Concomitant]
  31. ACECOL (TEMOCAPRIL HYDROCHLORIDE) [Concomitant]
  32. PERSANTIN-L (DIPYRIDAMOLE) [Concomitant]
  33. EDIROL (ELDECALCITOL) [Concomitant]
  34. DEPAS (ETIZOLAM) [Concomitant]
  35. BREDININ (MIZORIBINE) [Suspect]
     Active Substance: MIZORIBINE
     Indication: LUPUS NEPHRITIS
     Dosage: DAILY
     Route: 048
     Dates: end: 20100204
  36. BIOFERMIN (STREPTOCOCCUS FAECAIS, BACILLUS SUBTILIS, LACTOBACILLUS ACIDOPHILUS) [Concomitant]
  37. ZITHROMAC (AZITHROMYCIN) [Concomitant]
  38. ONEALFA [Concomitant]
     Active Substance: ALFACALCIDOL
  39. HOKUNALIN /00654901/ (TULOBUTEROL) [Concomitant]
  40. MEPTIN (PROCATEROL HYDROCHLORIDE) [Concomitant]
  41. ANTEBATE (BETAMETHASONE BUTYRATE PROPIONATE) [Concomitant]
  42. PL GRAN. (CAFFEINE, PARACETAMOL, PROMETHAZINE METHYLENE DISALICYLATE, SALICYLAMIDE) GRANULES [Concomitant]
  43. KLARICID /00984601/ (CLARITHROMYCIN) [Concomitant]

REACTIONS (17)
  - Systemic lupus erythematosus [None]
  - Condition aggravated [None]
  - Asthma [None]
  - Enterocolitis viral [None]
  - Sciatica [None]
  - Nasopharyngitis [None]
  - Anaemia macrocytic [None]
  - Hypercholesterolaemia [None]
  - Colitis ischaemic [None]
  - Neurosis [None]
  - Muscle spasms [None]
  - Disease progression [None]
  - Dizziness [None]
  - Nausea [None]
  - Renal impairment [None]
  - Pharyngitis [None]
  - Back pain [None]

NARRATIVE: CASE EVENT DATE: 200807
